FAERS Safety Report 6176587-8 (Version None)
Quarter: 2009Q2

REPORT INFORMATION
  Report Type: 
  Country: None (occurrence: None)
  Receive Date: 20090501
  Receipt Date: 20090424
  Transmission Date: 20091009
  Serious: Yes (Other)
  Sender: FDA-Public Use
  Company Number: BR-ELI_LILLY_AND_COMPANY-BR200904005952

PATIENT
  Sex: Female
  Weight: 81 kg

DRUGS (5)
  1. BYETTA [Suspect]
     Indication: TYPE 2 DIABETES MELLITUS
     Dosage: 5 UG, 2/D
     Route: 058
     Dates: start: 20090424
  2. GABAPENTIN [Concomitant]
     Indication: PAIN
     Dosage: 400 MG, 2/D
  3. AMITRIPTLINE HYDROCHLORIDE TAB [Concomitant]
     Indication: PAIN
     Dosage: 25 MG, 2/D
  4. PURAN T4 [Concomitant]
     Indication: THYROID DISORDER
     Dosage: 200 MG, UNK
  5. MIOSAN [Concomitant]
     Indication: PAIN
     Dosage: 10 MG, UNK

REACTIONS (8)
  - ABNORMAL SENSATION IN EYE [None]
  - FATIGUE [None]
  - FEELING HOT [None]
  - HYPOGLYCAEMIA [None]
  - SENSATION OF PRESSURE [None]
  - TACHYCARDIA [None]
  - THROAT IRRITATION [None]
  - TREMOR [None]
